FAERS Safety Report 10752781 (Version 1)
Quarter: 2015Q1

REPORT INFORMATION
  Report Type: Spontaneous
  Country: US (occurrence: US)
  Receive Date: 20150130
  Receipt Date: 20150130
  Transmission Date: 20150721
  Serious: No
  Sender: FDA-Public Use
  Company Number: US-ABBVIE-14P-163-1288698-00

PATIENT
  Sex: Male

DRUGS (3)
  1. NATURAL CELLECTION [Concomitant]
     Indication: PROSTATIC SPECIFIC ANTIGEN INCREASED
  2. LUPRON DEPOT [Suspect]
     Active Substance: LEUPROLIDE ACETATE
     Indication: PROSTATE CANCER
  3. X20 [Concomitant]
     Indication: PROSTATIC SPECIFIC ANTIGEN INCREASED

REACTIONS (3)
  - Asthenia [Unknown]
  - Adverse drug reaction [Unknown]
  - Blood testosterone decreased [Unknown]
